FAERS Safety Report 6182477-7 (Version None)
Quarter: 2009Q2

REPORT INFORMATION
  Report Type: 
  Country: None (occurrence: None)
  Receive Date: 20090507
  Receipt Date: 20090428
  Transmission Date: 20091009
  Serious: No
  Sender: FDA-Public Use
  Company Number: PE-ROCHE-629155

PATIENT
  Sex: Female

DRUGS (1)
  1. ROACCUTAN [Suspect]
     Indication: DRUG USE FOR UNKNOWN INDICATION
     Route: 065

REACTIONS (2)
  - NO ADVERSE EVENT [None]
  - PREGNANCY [None]
